FAERS Safety Report 8386351-7 (Version None)
Quarter: 2012Q2

REPORT INFORMATION
  Report Type: 
  Country: None (occurrence: None)
  Receive Date: 20120525
  Receipt Date: 20120515
  Transmission Date: 20120825
  Serious: Yes (Hospitalization)
  Sender: FDA-Public Use
  Company Number: DE-JNJFOC-20120405551

PATIENT
  Age: 39 Year
  Sex: Male

DRUGS (3)
  1. REMICADE [Suspect]
     Indication: COLITIS ULCERATIVE
     Route: 042
     Dates: start: 20110826
  2. REMICADE [Suspect]
     Route: 042
     Dates: start: 20120323
  3. REMICADE [Suspect]
     Route: 042

REACTIONS (1)
  - VITH NERVE PARALYSIS [None]
